FAERS Safety Report 9104677 (Version 1)
Quarter: 2013Q1

REPORT INFORMATION
  Report Type: Spontaneous
  Country: US (occurrence: US)
  Receive Date: 20130220
  Receipt Date: 20130220
  Transmission Date: 20140127
  Serious: Yes (Other)
  Sender: FDA-Public Use
  Company Number: US-PFIZER INC-2013061696

PATIENT
  Age: 52 Year
  Sex: Female
  Weight: 92.97 kg

DRUGS (3)
  1. CELEBREX [Suspect]
     Indication: OSTEOARTHRITIS
     Dosage: 200 MG DAILY
     Dates: start: 2012
  2. GLIMEPIRIDE [Concomitant]
     Indication: DIABETES MELLITUS
     Dosage: 04 MG, 2X/DAY
  3. DIOVAN HCT [Concomitant]
     Indication: HYPERTENSION
     Dosage: 320/125 MG DAILY

REACTIONS (2)
  - Syncope [Unknown]
  - Dizziness [Not Recovered/Not Resolved]
